FAERS Safety Report 22049648 (Version 1)
Quarter: 2023Q1

REPORT INFORMATION
  Report Type: Spontaneous
  Country: US (occurrence: None)
  Receive Date: 20230228
  Receipt Date: 20230228
  Transmission Date: 20230417
  Serious: No
  Sender: FDA-Public Use
  Company Number: None

PATIENT
  Age: 54 Year
  Sex: Female
  Weight: 59.85 kg

DRUGS (5)
  1. TEPEZZA [Suspect]
     Active Substance: TEPROTUMUMAB-TRBW
     Indication: Endocrine ophthalmopathy
     Dates: start: 20221111
  2. ZOLOFT [Concomitant]
     Active Substance: SERTRALINE HYDROCHLORIDE
  3. ATORVASTATIN [Concomitant]
     Active Substance: ATORVASTATIN
  4. LISINOPRIL [Concomitant]
     Active Substance: LISINOPRIL
  5. ALLEGRA [Concomitant]
     Active Substance: FEXOFENADINE HYDROCHLORIDE

REACTIONS (7)
  - Decreased appetite [None]
  - Weight decreased [None]
  - Ear discomfort [None]
  - Tinnitus [None]
  - Fatigue [None]
  - Alopecia [None]
  - Infusion related reaction [None]

NARRATIVE: CASE EVENT DATE: 20221111
